FAERS Safety Report 7813942-1 (Version None)
Quarter: 2011Q4

REPORT INFORMATION
  Report Type: 
  Country: None (occurrence: None)
  Receive Date: 20111014
  Receipt Date: 20111007
  Transmission Date: 20120403
  Serious: Yes (Other)
  Sender: FDA-Public Use
  Company Number: IE-PFIZER INC-2011241033

PATIENT

DRUGS (1)
  1. SUTENT [Suspect]

REACTIONS (1)
  - NECROSIS [None]
